FAERS Safety Report 4403572-6 (Version None)
Quarter: 2004Q3

REPORT INFORMATION
  Report Type: 
  Country: None (occurrence: None)
  Receive Date: 20040721
  Receipt Date: 20040716
  Transmission Date: 20050211
  Serious: Yes (Other)
  Sender: FDA-Public Use
  Company Number: GBPFL-S-20040018

PATIENT
  Sex: Female

DRUGS (1)
  1. NAVELBINE [Suspect]
     Indication: ILL-DEFINED DISORDER
     Route: 042
     Dates: start: 20040601

REACTIONS (8)
  - APPLICATION SITE BURNING [None]
  - BLISTER [None]
  - CATHETER SITE PAIN [None]
  - EXTRAVASATION [None]
  - INJECTION SITE REACTION [None]
  - PAIN [None]
  - SKIN NECROSIS [None]
  - VEIN PAIN [None]
